FAERS Safety Report 26142271 (Version 1)
Quarter: 2025Q4

REPORT INFORMATION
  Report Type: Spontaneous
  Country: US (occurrence: US)
  Receive Date: 20251210
  Receipt Date: 20251210
  Transmission Date: 20260117
  Serious: Yes (Other)
  Sender: NOVO NORDISK
  Company Number: US-NOVOPROD-1579432

PATIENT
  Sex: Female

DRUGS (1)
  1. VICTOZA [Suspect]
     Active Substance: LIRAGLUTIDE
     Indication: Type 2 diabetes mellitus
     Dosage: UNK

REACTIONS (6)
  - Hypergammaglobulinaemia benign monoclonal [Unknown]
  - Infusion [Unknown]
  - Hypertension [Unknown]
  - Cardiac disorder [Not Recovered/Not Resolved]
  - Anaemia [Recovered/Resolved]
  - Blood cholesterol increased [Recovered/Resolved]
